FAERS Safety Report 14096448 (Version 3)
Quarter: 2017Q4

REPORT INFORMATION
  Report Type: Spontaneous
  Country: BE (occurrence: BE)
  Receive Date: 20171017
  Receipt Date: 20171102
  Transmission Date: 20180321
  Serious: Yes (Death, Life-Threatening, Hospitalization, Other)
  Sender: FDA-Public Use
  Company Number: BE-WEST-WARD PHARMACEUTICALS CORP.-BE-H14001-17-04025

PATIENT
  Age: 50 Year
  Sex: Female
  Weight: 89 kg

DRUGS (16)
  1. IRINOTECAN [Suspect]
     Active Substance: IRINOTECAN
     Indication: OESOPHAGEAL ADENOCARCINOMA
     Route: 042
     Dates: start: 20160614, end: 20160614
  2. DUROGESIC [Concomitant]
     Active Substance: FENTANYL
     Indication: ABDOMINAL PAIN UPPER
  3. OXYNORM [Concomitant]
     Active Substance: OXYCODONE HYDROCHLORIDE
     Indication: BACK PAIN
     Route: 065
     Dates: start: 20160524
  4. PANTOMED (PANTOPRAZOLE SODIUM) [Concomitant]
     Active Substance: PANTOPRAZOLE SODIUM
     Indication: PROPHYLAXIS
     Route: 065
     Dates: start: 20160519
  5. ULTRA POTASSIUM [Concomitant]
     Indication: HYPOKALAEMIA
     Route: 065
  6. LORMETAZEPAM [Concomitant]
     Active Substance: LORMETAZEPAM
     Indication: INSOMNIA
     Route: 065
     Dates: start: 20160526
  7. KONAKION [Concomitant]
     Active Substance: PHYTONADIONE
     Indication: NAUSEA
     Route: 065
     Dates: start: 20160517
  8. FRAXODI [Concomitant]
     Active Substance: NADROPARIN CALCIUM
     Indication: THROMBOSIS PROPHYLAXIS
     Route: 065
     Dates: start: 20160611, end: 20160618
  9. SYNGEL [Concomitant]
     Indication: NAUSEA
     Route: 065
     Dates: start: 20160502
  10. DUROGESIC [Concomitant]
     Active Substance: FENTANYL
     Indication: BACK PAIN
     Route: 065
     Dates: start: 20160602, end: 20160714
  11. MEDROL [Concomitant]
     Active Substance: METHYLPREDNISOLONE
     Indication: NAUSEA
     Route: 065
     Dates: start: 20160630, end: 20160713
  12. GESTOFEME [Concomitant]
     Indication: CONTRACEPTION
     Route: 048
     Dates: start: 1970
  13. AVELUMAB [Suspect]
     Active Substance: AVELUMAB
     Indication: PRODUCT USED FOR UNKNOWN INDICATION
     Route: 042
  14. CLEXANE [Concomitant]
     Active Substance: ENOXAPARIN SODIUM
     Indication: THROMBOSIS PROPHYLAXIS
     Route: 065
     Dates: start: 20160530, end: 20160610
  15. SYNGEL [Concomitant]
     Indication: VOMITING
  16. STEOVIT D3 [Concomitant]
     Active Substance: CALCIUM CARBONATE\CHOLECALCIFEROL
     Indication: SUPPLEMENTATION THERAPY
     Route: 065
     Dates: start: 20160524

REACTIONS (9)
  - Disease progression [Fatal]
  - Nausea [Not Recovered/Not Resolved]
  - Cholangitis [Not Recovered/Not Resolved]
  - Vomiting [Recovered/Resolved]
  - Condition aggravated [Unknown]
  - Sepsis [Recovered/Resolved]
  - Decreased appetite [Unknown]
  - Oesophageal adenocarcinoma [Fatal]
  - Hydronephrosis [Unknown]

NARRATIVE: CASE EVENT DATE: 20160615
